FAERS Safety Report 7948711-5 (Version None)
Quarter: 2011Q4

REPORT INFORMATION
  Report Type: 
  Country: None (occurrence: None)
  Receive Date: 20111130
  Receipt Date: 20111130
  Transmission Date: 20120403
  Serious: Yes (Congenital Anomaly)
  Sender: FDA-Public Use
  Company Number: None

PATIENT
  Age: 31 Year
  Sex: Female
  Weight: 58.967 kg

DRUGS (1)
  1. PROZAC [Suspect]
     Indication: BULIMIA NERVOSA
     Dosage: 20 MG
     Dates: start: 19921010, end: 20050601

REACTIONS (5)
  - DEVELOPMENTAL DELAY [None]
  - HYPOTHYROIDISM [None]
  - AUTOIMMUNE DISORDER [None]
  - SPEECH DISORDER DEVELOPMENTAL [None]
  - MATERNAL DRUGS AFFECTING FOETUS [None]
